FAERS Safety Report 9746720 (Version 1)
Quarter: 2013Q4

REPORT INFORMATION
  Report Type: Spontaneous
  Country: US (occurrence: US)
  Receive Date: 20131211
  Receipt Date: 20131211
  Transmission Date: 20140711
  Serious: Yes (Other)
  Sender: FDA-Public Use
  Company Number: US-ALLERGAN-1318992US

PATIENT
  Sex: Male

DRUGS (1)
  1. LASTACAFT [Suspect]
     Indication: PRODUCT USED FOR UNKNOWN INDICATION
     Route: 047

REACTIONS (4)
  - Corneal oedema [Unknown]
  - Eyelid ptosis [Unknown]
  - Conjunctivitis [Unknown]
  - Hypersensitivity [Unknown]
